FAERS Safety Report 11864019 (Version 1)
Quarter: 2015Q4

REPORT INFORMATION
  Report Type: Spontaneous
  Country: TR (occurrence: TR)
  Receive Date: 20151223
  Receipt Date: 20151223
  Transmission Date: 20160305
  Serious: Yes (Other)
  Sender: FDA-Public Use
  Company Number: TR-UCBSA-2015035124

PATIENT
  Sex: Female

DRUGS (1)
  1. CIMZIA [Suspect]
     Active Substance: CERTOLIZUMAB PEGOL
     Indication: RHEUMATOID ARTHRITIS
     Dosage: 400 MG, EV 2 WEEKS(QOW)
     Route: 058
     Dates: start: 20150918, end: 20151030

REACTIONS (2)
  - Breast cancer [Not Recovered/Not Resolved]
  - Breast pain [Not Recovered/Not Resolved]

NARRATIVE: CASE EVENT DATE: 20151019
